APPROVED DRUG PRODUCT: LEVOCETIRIZINE DIHYDROCHLORIDE
Active Ingredient: LEVOCETIRIZINE DIHYDROCHLORIDE
Strength: 5MG
Dosage Form/Route: TABLET;ORAL
Application: A201653 | Product #001
Applicant: SUN PHARMACEUTICAL INDUSTRIES LTD
Approved: Jun 26, 2015 | RLD: No | RS: No | Type: DISCN